FAERS Safety Report 18207081 (Version 3)
Quarter: 2021Q2

REPORT INFORMATION
  Report Type: Spontaneous
  Country: US (occurrence: US)
  Receive Date: 20200828
  Receipt Date: 20210528
  Transmission Date: 20210717
  Serious: No
  Sender: FDA-Public Use
  Company Number: US-MYLANLABS-2020M1074425

PATIENT
  Sex: Female

DRUGS (1)
  1. XULANE [Suspect]
     Active Substance: ETHINYL ESTRADIOL\NORELGESTROMIN
     Indication: PRODUCT USED FOR UNKNOWN INDICATION
     Dosage: 150/35 MICROGRAM (1 PATCH WEEKLY FOR 3 WEEKS/1 WEEK OFF)
     Route: 062
     Dates: end: 20200828

REACTIONS (3)
  - Application site burn [Not Recovered/Not Resolved]
  - Application site erythema [Unknown]
  - Application site rash [Unknown]
